FAERS Safety Report 7420481-9 (Version None)
Quarter: 2011Q2

REPORT INFORMATION
  Report Type: 
  Country: None (occurrence: None)
  Receive Date: 20110418
  Receipt Date: 20110407
  Transmission Date: 20111010
  Serious: Yes (Other)
  Sender: FDA-Public Use
  Company Number: US-JNJFOC-20110404284

PATIENT
  Sex: Female
  Weight: 113.4 kg

DRUGS (6)
  1. FENTANYL-100 [Suspect]
     Indication: ARTHRITIS
     Route: 062
  2. DURAGESIC [Suspect]
     Route: 062
  3. DURAGESIC [Suspect]
     Indication: ARTHRITIS
     Route: 062
  4. DURAGESIC [Suspect]
     Route: 062
  5. OMEPRAZOLE [Concomitant]
     Indication: GASTROOESOPHAGEAL REFLUX DISEASE
     Route: 065
  6. CYMBALTA [Concomitant]
     Indication: DEPRESSION
     Route: 048

REACTIONS (9)
  - DRUG DOSE OMISSION [None]
  - VITAMIN D DECREASED [None]
  - ANXIETY [None]
  - DEPENDENCE [None]
  - THERAPEUTIC RESPONSE DECREASED [None]
  - WEIGHT DECREASED [None]
  - INAPPROPRIATE SCHEDULE OF DRUG ADMINISTRATION [None]
  - MIGRAINE [None]
  - PAIN [None]
